FAERS Safety Report 8135068-2 (Version None)
Quarter: 2012Q1

REPORT INFORMATION
  Report Type: 
  Country: None (occurrence: None)
  Receive Date: 20120214
  Receipt Date: 20120208
  Transmission Date: 20120608
  Serious: No
  Sender: FDA-Public Use
  Company Number: US-PFIZER INC-2012037092

PATIENT
  Sex: Male
  Weight: 90.703 kg

DRUGS (6)
  1. CHANTIX [Suspect]
     Indication: SMOKING CESSATION THERAPY
     Dosage: UNK
     Route: 048
     Dates: start: 20020101
  2. ZOCOR [Concomitant]
     Indication: CARDIAC DISORDER
  3. WELLBUTRIN [Concomitant]
     Indication: ANTIDEPRESSANT THERAPY
     Dosage: 300 MG, DAILY
  4. ZOCOR [Concomitant]
     Indication: HYPERTENSION
     Dosage: 10 MG, DAILY
  5. CHANTIX [Suspect]
     Dosage: UNK
  6. PAXIL [Concomitant]
     Indication: ANTIDEPRESSANT THERAPY
     Dosage: 40 MG, DAILY

REACTIONS (1)
  - ABNORMAL DREAMS [None]
